FAERS Safety Report 4269378-6 (Version None)
Quarter: 2004Q1

REPORT INFORMATION
  Report Type: 
  Country: None (occurrence: None)
  Receive Date: 20040109
  Receipt Date: 20031230
  Transmission Date: 20041129
  Serious: Yes (Death, Hospitalization)
  Sender: FDA-Public Use
  Company Number: 22760

PATIENT
  Age: 82 Year
  Sex: Male

DRUGS (4)
  1. NITROGLYCERIN [Suspect]
     Dosage: (1 DOSAGE FORMS, 1 IN 1 DAY (S) )TRANSDERMAL
     Route: 062
     Dates: start: 20031119
  2. AMLODIPINE BESYLATE [Suspect]
     Dosage: 15 MG (5 MG, 3 IN 1 DAY(S) ) ORAL
     Route: 048
     Dates: start: 20031119
  3. IKOREL [Suspect]
     Dosage: 60 MG (20 M G, 3 IN 1 DAY (S) ) ORAL
     Route: 048
     Dates: start: 20031119
  4. PREVISCAN (FLUINDIONE) [Concomitant]

REACTIONS (3)
  - NORMOCHROMIC NORMOCYTIC ANAEMIA [None]
  - OVERDOSE [None]
  - THROMBOCYTOPENIA [None]
